FAERS Safety Report 4782365-4 (Version None)
Quarter: 2005Q3

REPORT INFORMATION
  Report Type: 
  Country: None (occurrence: None)
  Receive Date: 20050927
  Receipt Date: 20050914
  Transmission Date: 20060218
  Serious: Yes (Death)
  Sender: FDA-Public Use
  Company Number: 2005129224

PATIENT
  Age: 39 Year
  Sex: 0

DRUGS (3)
  1. DOXEPIN (CAPS) (DOXEPIN) [Suspect]
     Indication: ILL-DEFINED DISORDER
  2. FLUOXETINE HYDROCHORIDE (FLUOXETINE HYDROCHLORIDE) [Suspect]
     Indication: ILL-DEFINED DISORDER
  3. BENZTROPINE MESYLATE [Suspect]
     Indication: ILL-DEFINED DISORDER

REACTIONS (3)
  - COMPLETED SUICIDE [None]
  - INTENTIONAL MISUSE [None]
  - MULTIPLE DRUG OVERDOSE [None]
